FAERS Safety Report 25431505 (Version 1)
Quarter: 2025Q2

REPORT INFORMATION
  Report Type: Other
  Country: IR (occurrence: IR)
  Receive Date: 20250613
  Receipt Date: 20250613
  Transmission Date: 20250716
  Serious: Yes (Hospitalization, Other)
  Sender: BRECKENRIDGE PHARMACEUTICAL, INC.
  Company Number: IR-Breckenridge Pharmaceutical, Inc.-2178451

PATIENT
  Age: 39 Year
  Sex: Female

DRUGS (1)
  1. TERIFLUNOMIDE [Suspect]
     Active Substance: TERIFLUNOMIDE
     Indication: Relapsing-remitting multiple sclerosis

REACTIONS (2)
  - Chronic cutaneous lupus erythematosus [Recovered/Resolved]
  - Hepatic enzyme increased [Recovered/Resolved]
